FAERS Safety Report 8539427-5 (Version None)
Quarter: 2012Q3

REPORT INFORMATION
  Report Type: 
  Country: None (occurrence: None)
  Receive Date: 20120726
  Receipt Date: 20120718
  Transmission Date: 20120928
  Serious: Yes (Hospitalization)
  Sender: FDA-Public Use
  Company Number: US-009507513-1207USA008540

PATIENT

DRUGS (2)
  1. [THERAPY UNSPECIFIED] [Concomitant]
  2. SAPHRIS [Suspect]
     Indication: BIPOLAR I DISORDER

REACTIONS (2)
  - DEPRESSION [None]
  - SUICIDAL IDEATION [None]
